FAERS Safety Report 6435554-7 (Version None)
Quarter: 2009Q4

REPORT INFORMATION
  Report Type: 
  Country: None (occurrence: None)
  Receive Date: 20091111
  Receipt Date: 20091102
  Transmission Date: 20100525
  Serious: Yes (Hospitalization, Other)
  Sender: FDA-Public Use
  Company Number: KR-WYE-H06899808

PATIENT
  Sex: Male
  Weight: 83.7 kg

DRUGS (1)
  1. DESVENLAFAXINE SUCCINATE MONOHYDRATE [Suspect]
     Indication: MAJOR DEPRESSION
     Route: 048
     Dates: start: 20080912, end: 20081114

REACTIONS (2)
  - BIPOLAR I DISORDER [None]
  - TREMOR [None]
